FAERS Safety Report 21883815 (Version 1)
Quarter: 2023Q1

REPORT INFORMATION
  Report Type: Spontaneous
  Country: US (occurrence: US)
  Receive Date: 20230119
  Receipt Date: 20230119
  Transmission Date: 20230417
  Serious: No
  Sender: FDA-Public Use
  Company Number: US-STRIDES ARCOLAB LIMITED-2022SP015494

PATIENT
  Sex: Female
  Weight: 104.33 kg

DRUGS (2)
  1. HYDROCODONE BITARTRATE AND ACETAMINOPHEN [Suspect]
     Active Substance: ACETAMINOPHEN\HYDROCODONE BITARTRATE
     Indication: Back pain
     Dosage: 1 TABLETS, BID, BY MOUTH, AT 5 PM AND AT BED TIME
     Route: 065
  2. TOFACITINIB [Concomitant]
     Active Substance: TOFACITINIB
     Indication: Pain
     Dosage: 11 MILLIGRAM, TABLET ONCE A DAY BY MOUTH
     Route: 065

REACTIONS (2)
  - Drug ineffective [Unknown]
  - Medication error [Unknown]
